FAERS Safety Report 13184641 (Version 3)
Quarter: 2018Q3

REPORT INFORMATION
  Report Type: Report from Study
  Country: JP (occurrence: JP)
  Receive Date: 20170203
  Receipt Date: 20180713
  Transmission Date: 20181010
  Serious: Yes (Death, Other)
  Sender: FDA-Public Use
  Company Number: JP-AMGEN-JPNCT2017018034

PATIENT
  Age: 62 Year
  Sex: Male
  Weight: 77 kg

DRUGS (3)
  1. DARBEPOETIN ALFA [Suspect]
     Active Substance: DARBEPOETIN ALFA
     Indication: MYELODYSPLASTIC SYNDROME
     Dosage: 240 MUG, UNK
     Route: 058
     Dates: start: 20141223, end: 20141223
  2. DARBEPOETIN ALFA [Suspect]
     Active Substance: DARBEPOETIN ALFA
     Dosage: 240 MUG, UNK
     Route: 058
     Dates: start: 20150520, end: 20150520
  3. AZACITIDINE. [Suspect]
     Active Substance: AZACITIDINE
     Indication: MYELODYSPLASTIC SYNDROME
     Dosage: UNK
     Route: 065

REACTIONS (2)
  - Anaemia [Recovering/Resolving]
  - Death [Fatal]

NARRATIVE: CASE EVENT DATE: 20150413
